FAERS Safety Report 4358854-3 (Version None)
Quarter: 2004Q2

REPORT INFORMATION
  Report Type: 
  Country: None (occurrence: None)
  Receive Date: 20040512
  Receipt Date: 20040430
  Transmission Date: 20050107
  Serious: Yes (Other)
  Sender: FDA-Public Use
  Company Number: 2004029434

PATIENT
  Age: 20 Year
  Sex: Female

DRUGS (1)
  1. ZITHROMAX [Suspect]
     Indication: ASTHMA
     Dosage: INTRAVENOUS
     Route: 042

REACTIONS (2)
  - ANAPHYLACTIC REACTION [None]
  - TACHYPHYLAXIS [None]
